FAERS Safety Report 25116841 (Version 1)
Quarter: 2025Q1

REPORT INFORMATION
  Report Type: Spontaneous
  Country: FR (occurrence: FR)
  Receive Date: 20250325
  Receipt Date: 20250325
  Transmission Date: 20250408
  Serious: Yes (Hospitalization)
  Sender: RECORDATI
  Company Number: FR-ORPHANEU-2025001934

PATIENT
  Age: 65 Year
  Sex: Male

DRUGS (1)
  1. SYLVANT [Suspect]
     Active Substance: SILTUXIMAB
     Indication: Castleman^s disease
     Route: 042
     Dates: start: 2025

REACTIONS (1)
  - Cardiac failure acute [Unknown]

NARRATIVE: CASE EVENT DATE: 20250301
